FAERS Safety Report 5671286-0 (Version None)
Quarter: 2008Q1

REPORT INFORMATION
  Report Type: 
  Country: None (occurrence: None)
  Receive Date: 20080318
  Receipt Date: 20080312
  Transmission Date: 20080703
  Serious: Yes (Other)
  Sender: FDA-Public Use
  Company Number: US-BRISTOL-MYERS SQUIBB COMPANY-14114003

PATIENT

DRUGS (3)
  1. ATAZANAVIR SULFATE [Suspect]
  2. RITONAVIR [Interacting]
  3. FLUTICASONE [Interacting]

REACTIONS (2)
  - DRUG INTERACTION [None]
  - KAPOSI'S SARCOMA [None]
